FAERS Safety Report 19950376 (Version 1)
Quarter: 2021Q4

REPORT INFORMATION
  Report Type: Spontaneous
  Country: US (occurrence: US)
  Receive Date: 20211013
  Receipt Date: 20211013
  Transmission Date: 20220303
  Serious: No
  Sender: FDA-Public Use
  Company Number: None

PATIENT
  Age: 78 Year
  Sex: Female
  Weight: 82.35 kg

DRUGS (11)
  1. IBRANCE [Suspect]
     Active Substance: PALBOCICLIB
     Indication: Breast cancer
     Dosage: ?          OTHER FREQUENCY:DAILY FOR 21/28D;
     Route: 048
  2. AROMASIN [Concomitant]
     Active Substance: EXEMESTANE
  3. ASCORBIC ACID [Concomitant]
     Active Substance: ASCORBIC ACID
  4. CALCIUM CARBONATE\CHOLECALCIFEROL [Concomitant]
     Active Substance: CALCIUM CARBONATE\CHOLECALCIFEROL
  5. IRON [Concomitant]
     Active Substance: IRON
  6. GLIPIZIDE [Concomitant]
     Active Substance: GLIPIZIDE
  7. Lidocaine- Prilocaine [Concomitant]
  8. LISINOPRIL [Concomitant]
     Active Substance: LISINOPRIL
  9. METFORMIN [Concomitant]
     Active Substance: METFORMIN HYDROCHLORIDE
  10. RESTASIS [Concomitant]
     Active Substance: CYCLOSPORINE
  11. VITAMIN B12 [Concomitant]
     Active Substance: CYANOCOBALAMIN

REACTIONS (1)
  - Full blood count abnormal [None]

NARRATIVE: CASE EVENT DATE: 20211011
